FAERS Safety Report 18947367 (Version 1)
Quarter: 2021Q1

REPORT INFORMATION
  Report Type: Spontaneous
  Country: KR (occurrence: KR)
  Receive Date: 20210226
  Receipt Date: 20210226
  Transmission Date: 20210420
  Serious: Yes (Other)
  Sender: FDA-Public Use
  Company Number: KR-BAYER-2021-078306

PATIENT
  Age: 49 Year
  Sex: Male

DRUGS (4)
  1. PYRIDOXIN [Concomitant]
     Active Substance: PYRIDOXINE
     Dosage: 50 MG
  2. AZACITIDINE. [Concomitant]
     Active Substance: AZACITIDINE
     Dosage: 135 MG
  3. ISONIAZID. [Concomitant]
     Active Substance: ISONIAZID
     Dosage: 300 MG
  4. SORAFENIB (RAF KINASE INHIBITOR) [Suspect]
     Active Substance: SORAFENIB
     Indication: ACUTE MYELOID LEUKAEMIA
     Dosage: 400 MG DAILY

REACTIONS (3)
  - Off label use [None]
  - Product use in unapproved indication [None]
  - Hidradenitis [None]
